FAERS Safety Report 5358783-2 (Version None)
Quarter: 2007Q2

REPORT INFORMATION
  Report Type: 
  Country: None (occurrence: None)
  Receive Date: 20070615
  Receipt Date: 20070612
  Transmission Date: 20071010
  Serious: Yes (Death)
  Sender: FDA-Public Use
  Company Number: JP-AVENTIS-200310995JP

PATIENT
  Age: 63 Year
  Sex: Male
  Weight: 64.6 kg

DRUGS (8)
  1. TAXOTERE [Suspect]
     Route: 041
     Dates: start: 20030820, end: 20030820
  2. UFT [Suspect]
     Route: 048
     Dates: start: 20030821, end: 20030831
  3. NAIXAN                             /00256201/ [Concomitant]
     Indication: CANCER PAIN
     Route: 048
     Dates: start: 20030723, end: 20030831
  4. WYPAX [Concomitant]
     Route: 048
     Dates: start: 20030721, end: 20030830
  5. TAKEPRON [Concomitant]
     Indication: STOMACH DISCOMFORT
     Route: 048
     Dates: start: 20030807, end: 20030831
  6. DOGMATYL [Concomitant]
     Route: 048
     Dates: start: 20030729, end: 20030831
  7. PREDONINE                          /00016201/ [Concomitant]
     Indication: ANOREXIA
     Route: 048
     Dates: start: 20030808, end: 20030831
  8. SELBEX [Concomitant]
     Indication: STOMACH DISCOMFORT
     Route: 048
     Dates: start: 20030806, end: 20030831

REACTIONS (1)
  - INTERSTITIAL LUNG DISEASE [None]
